FAERS Safety Report 12589015 (Version 1)
Quarter: 2016Q3

REPORT INFORMATION
  Report Type: Spontaneous
  Country: US (occurrence: US)
  Receive Date: 20160725
  Receipt Date: 20160725
  Transmission Date: 20161109
  Serious: No
  Sender: FDA-Public Use
  Company Number: US-JNJFOC-20160519223

PATIENT
  Age: 65 Year
  Sex: Female
  Weight: 56 kg

DRUGS (1)
  1. DARZALEX [Suspect]
     Active Substance: DARATUMUMAB
     Indication: PLASMA CELL MYELOMA
     Dosage: 800 MG SPLIT OVER 2 DAYS (400 MG AND 400 MG)
     Route: 042
     Dates: start: 20160518

REACTIONS (2)
  - Wrong technique in product usage process [Recovered/Resolved]
  - Wrong technique in product usage process [Recovered/Resolved]

NARRATIVE: CASE EVENT DATE: 201605
